FAERS Safety Report 12633046 (Version 2)
Quarter: 2016Q3

REPORT INFORMATION
  Report Type: Spontaneous
  Country: US (occurrence: US)
  Receive Date: 20160808
  Receipt Date: 20160808
  Transmission Date: 20161109
  Serious: No
  Sender: FDA-Public Use
  Company Number: US-BEH-2016058264

PATIENT
  Sex: Male
  Weight: 85 kg

DRUGS (15)
  1. GABPENTIN [Concomitant]
  2. COREG [Concomitant]
     Active Substance: CARVEDILOL
  3. FLOIC ACID [Concomitant]
  4. HIZENTRA [Suspect]
     Active Substance: HUMAN IMMUNOGLOBULIN G
     Route: 058
  5. LIVALO [Concomitant]
     Active Substance: PITAVASTATIN CALCIUM
  6. HIZENTRA [Suspect]
     Active Substance: HUMAN IMMUNOGLOBULIN G
  7. EPIPEN [Concomitant]
     Active Substance: EPINEPHRINE
  8. VITAMIN D [Concomitant]
     Active Substance: CHOLECALCIFEROL
  9. METHOTREXATE. [Concomitant]
     Active Substance: METHOTREXATE
  10. LEVOTHYROXINE. [Concomitant]
     Active Substance: LEVOTHYROXINE
  11. VITAMIN B [Concomitant]
     Active Substance: VITAMIN B
  12. CALCIUM [Concomitant]
     Active Substance: CALCIUM
  13. HIZENTRA [Suspect]
     Active Substance: HUMAN IMMUNOGLOBULIN G
     Indication: IMMUNODEFICIENCY COMMON VARIABLE
     Route: 058
  14. DIPHENHYDRAMINE. [Concomitant]
     Active Substance: DIPHENHYDRAMINE
  15. ASPIRIN. [Concomitant]
     Active Substance: ASPIRIN

REACTIONS (1)
  - Nasopharyngitis [Unknown]
